FAERS Safety Report 9095779 (Version 1)
Quarter: 2013Q1

REPORT INFORMATION
  Report Type: Spontaneous
  Country: US (occurrence: US)
  Receive Date: 20130219
  Receipt Date: 20130219
  Transmission Date: 20140127
  Serious: No
  Sender: FDA-Public Use
  Company Number: US-BAUSCH-2012BL001417

PATIENT
  Age: 68 Year
  Sex: Male

DRUGS (1)
  1. SULFACETAMIDE SODIUM [Suspect]
     Indication: EYE INFECTION
     Route: 047
     Dates: start: 20120217, end: 20120228

REACTIONS (1)
  - Foreign body in eye [Recovered/Resolved]
